FAERS Safety Report 15405370 (Version 1)
Quarter: 2018Q3

REPORT INFORMATION
  Report Type: Spontaneous
  Country: US (occurrence: US)
  Receive Date: 20180920
  Receipt Date: 20180920
  Transmission Date: 20181010
  Serious: No
  Sender: FDA-Public Use
  Company Number: US-TEVA-2018-US-930484

PATIENT
  Age: 5 Year
  Sex: Female

DRUGS (2)
  1. CLONAZEPAM. [Suspect]
     Active Substance: CLONAZEPAM
     Indication: MIDDLE INSOMNIA
     Dosage: INITIATED AT 0.125 MG, WHICH WAS FURTHER TITRATED TO 0.250 MG; AT BEDTIME
     Route: 065
  2. CLONAZEPAM. [Suspect]
     Active Substance: CLONAZEPAM
     Indication: MIDDLE INSOMNIA
     Dosage: SECOND DOSE: 0.125 MG
     Route: 065

REACTIONS (4)
  - Agitation [Unknown]
  - Paradoxical drug reaction [Unknown]
  - Aggression [Unknown]
  - Abnormal behaviour [Unknown]
